FAERS Safety Report 14133339 (Version 1)
Quarter: 2017Q4

REPORT INFORMATION
  Report Type: Spontaneous
  Country: US (occurrence: US)
  Receive Date: 20171026
  Receipt Date: 20171026
  Transmission Date: 20180321
  Serious: No
  Sender: FDA-Public Use
  Company Number: US-BAYER-2017-189921

PATIENT
  Age: 78 Year
  Sex: Female

DRUGS (2)
  1. CIPRO [Suspect]
     Active Substance: CIPROFLOXACIN HYDROCHLORIDE
     Indication: WHITE BLOOD CELL COUNT INCREASED
  2. CIPRO [Suspect]
     Active Substance: CIPROFLOXACIN HYDROCHLORIDE
     Indication: URINARY TRACT INFECTION
     Dosage: 500 MG, UNK
     Dates: start: 20170917

REACTIONS (6)
  - Muscular weakness [Unknown]
  - Pain of skin [Unknown]
  - Drug ineffective [Unknown]
  - Feeling abnormal [Unknown]
  - Arthropathy [Unknown]
  - Influenza like illness [Unknown]
